FAERS Safety Report 11849311 (Version 2)
Quarter: 2016Q2

REPORT INFORMATION
  Report Type: Spontaneous
  Country: US (occurrence: US)
  Receive Date: 20151218
  Receipt Date: 20160628
  Transmission Date: 20160815
  Serious: No
  Sender: FDA-Public Use
  Company Number: US-FERRINGPH-2015FE01704

PATIENT
  Age: 43 Year
  Sex: Female

DRUGS (3)
  1. BRAVELLE [Suspect]
     Active Substance: FOLLITROPIN\UROFOLLITROPIN
     Indication: IN VITRO FERTILISATION
  2. MENOPUR [Suspect]
     Active Substance: FOLLICLE STIMULATING HORMONE BETA POLYPEPTIDE\LUTROPIN ALFA
     Indication: IN VITRO FERTILISATION
  3. FOLLISTIM [Concomitant]
     Active Substance: FOLLITROPIN

REACTIONS (2)
  - Incorrect product storage [Not Recovered/Not Resolved]
  - Drug ineffective [Not Recovered/Not Resolved]
